FAERS Safety Report 5049044-X (Version None)
Quarter: 2006Q3

REPORT INFORMATION
  Report Type: 
  Country: None (occurrence: None)
  Receive Date: 20060712
  Receipt Date: 20060207
  Transmission Date: 20061208
  Serious: No
  Sender: FDA-Public Use
  Company Number: US-GLAXOSMITHKLINE-A0592674A

PATIENT
  Age: 46 Year
  Sex: Female

DRUGS (3)
  1. IMITREX [Suspect]
     Indication: MIGRAINE
     Dosage: 50MG PER DAY
     Route: 048
     Dates: start: 20060202, end: 20060202
  2. BUSPAR [Concomitant]
  3. LEXAPRO [Concomitant]

REACTIONS (8)
  - DIARRHOEA [None]
  - DYSPNOEA [None]
  - HEADACHE [None]
  - HEART RATE INCREASED [None]
  - PHARMACEUTICAL PRODUCT COMPLAINT [None]
  - SUFFOCATION FEELING [None]
  - URTICARIA [None]
  - VOMITING [None]
